FAERS Safety Report 8246116-3 (Version None)
Quarter: 2012Q1

REPORT INFORMATION
  Report Type: 
  Country: None (occurrence: None)
  Receive Date: 20120330
  Receipt Date: 20120322
  Transmission Date: 20120608
  Serious: Yes (Death, Hospitalization)
  Sender: FDA-Public Use
  Company Number: IN-ELI_LILLY_AND_COMPANY-IN201202000386

PATIENT
  Age: 70 Year
  Sex: Female

DRUGS (3)
  1. VITAMIN TAB [Concomitant]
  2. FORTEO [Suspect]
     Indication: OSTEOPOROSIS
     Dosage: 20 UG, QD
     Route: 058
  3. CALCIUM CARBONATE [Concomitant]

REACTIONS (2)
  - MULTI-ORGAN FAILURE [None]
  - RESPIRATORY DISORDER [None]
